FAERS Safety Report 24204771 (Version 1)
Quarter: 2024Q3

REPORT INFORMATION
  Report Type: Spontaneous
  Country: US (occurrence: US)
  Receive Date: 20240813
  Receipt Date: 20240813
  Transmission Date: 20241017
  Serious: Yes (Hospitalization, Other)
  Sender: MEDLEY PHARMACEUTICALS
  Company Number: US-MEDLEY-000017

PATIENT
  Age: 64 Year
  Sex: Male

DRUGS (1)
  1. LACOSAMIDE [Suspect]
     Active Substance: LACOSAMIDE
     Indication: Seizure
     Route: 065

REACTIONS (3)
  - Presyncope [Unknown]
  - Condition aggravated [Unknown]
  - Atrioventricular block complete [Recovered/Resolved]
